FAERS Safety Report 6692326-6 (Version None)
Quarter: 2010Q2

REPORT INFORMATION
  Report Type: 
  Country: None (occurrence: None)
  Receive Date: 20100419
  Receipt Date: 20100407
  Transmission Date: 20101027
  Serious: Yes (Other)
  Sender: FDA-Public Use
  Company Number: 2010SP020865

PATIENT
  Sex: 0

DRUGS (1)
  1. ZEGERID [Suspect]
     Dosage: PO
     Route: 048

REACTIONS (2)
  - FAECES HARD [None]
  - MELAENA [None]
